FAERS Safety Report 8935355 (Version 1)
Quarter: 2012Q4

REPORT INFORMATION
  Report Type: Spontaneous
  Country: US (occurrence: None)
  Receive Date: 20121127
  Receipt Date: 20121127
  Transmission Date: 20130627
  Serious: Yes (Hospitalization)
  Sender: FDA-Public Use
  Company Number: None

PATIENT
  Age: 34 Year
  Weight: 68.04 kg

DRUGS (1)
  1. MIRENA IUD BAYER [Suspect]

REACTIONS (2)
  - Uterine perforation [None]
  - Complication of device insertion [None]
